FAERS Safety Report 10370229 (Version 1)
Quarter: 2014Q3

REPORT INFORMATION
  Report Type: Spontaneous
  Country: AU (occurrence: AU)
  Receive Date: 20140808
  Receipt Date: 20140808
  Transmission Date: 20150326
  Serious: Yes (Hospitalization)
  Sender: FDA-Public Use
  Company Number: AU-ACCORD-025089

PATIENT
  Age: 83 Year
  Sex: Female

DRUGS (11)
  1. GLYCERYL TRINITRATE [Concomitant]
     Active Substance: NITROGLYCERIN
  2. SERETIDE [Concomitant]
     Active Substance: FLUTICASONE FUROATE\SALMETEROL XINAFOATE
     Dosage: 250 INHALER
  3. METOPROLOL [Concomitant]
     Active Substance: METOPROLOL
  4. RAMIPRIL. [Concomitant]
     Active Substance: RAMIPRIL
  5. ASPIRIN. [Concomitant]
     Active Substance: ASPIRIN
  6. TIOTROPIUM/TIOTROPIUM BROMIDE [Concomitant]
  7. EZETIMIBE. [Concomitant]
     Active Substance: EZETIMIBE
  8. PROPYLTHIOURACIL. [Concomitant]
     Active Substance: PROPYLTHIOURACIL
  9. SIMVASTATIN. [Suspect]
     Active Substance: SIMVASTATIN
     Indication: PRODUCT USED FOR UNKNOWN INDICATION
  10. CLARITHROMYCIN/CLARITHROMYCIN LACTOBIONATE [Interacting]
     Active Substance: CLARITHROMYCIN LACTOBIONATE
     Indication: LOWER RESPIRATORY TRACT INFECTION
     Dosage: INITIALLY STARTED WITH 250 MG TWICE A DAY, 1 MONTH PRIOR?TO ADMISSION DOSE WAS INCREASED TO 500 MG
  11. VENTOLIN [Concomitant]
     Active Substance: ALBUTEROL SULFATE
     Dosage: INHALER

REACTIONS (5)
  - Oedema peripheral [Recovering/Resolving]
  - Rhabdomyolysis [Recovering/Resolving]
  - Lower respiratory tract infection [None]
  - Drug interaction [Recovering/Resolving]
  - Wheezing [None]
